FAERS Safety Report 13460999 (Version 1)
Quarter: 2017Q2

REPORT INFORMATION
  Report Type: Spontaneous
  Country: US (occurrence: US)
  Receive Date: 20170419
  Receipt Date: 20170419
  Transmission Date: 20170830
  Serious: Yes (Disabling)
  Sender: FDA-Public Use
  Company Number: None

PATIENT
  Age: 57 Year
  Sex: Female
  Weight: 63 kg

DRUGS (10)
  1. BREATHE EASY TEA [Concomitant]
  2. OFLOXACIN. [Suspect]
     Active Substance: OFLOXACIN
     Indication: CYSTITIS
     Route: 048
     Dates: start: 20170323, end: 20170328
  3. CALCIUM-VITAMIN D [Concomitant]
  4. RESTASIS [Concomitant]
     Active Substance: CYCLOSPORINE
  5. PLAQUENIL [Concomitant]
     Active Substance: HYDROXYCHLOROQUINE SULFATE
  6. VITAMIN B COMPLEX [Concomitant]
     Active Substance: CYANOCOBALAMIN\DEXPANTHENOL\NIACINAMIDE\PYRIDOXINE HYDROCHLORIDE\RIBOFLAVIN 5^-PHOSPHATE SODIUM\THIAMINE HYDROCHLORIDE\VITAMIN B COMPLEX
  7. HALOG [Concomitant]
     Active Substance: HALCINONIDE
  8. FISH OIL [Concomitant]
     Active Substance: FISH OIL
  9. ARNICA GEL [Concomitant]
  10. KETOCONAZOLE. [Concomitant]
     Active Substance: KETOCONAZOLE

REACTIONS (11)
  - Feeling abnormal [None]
  - Gait disturbance [None]
  - Abdominal pain upper [None]
  - Confusional state [None]
  - Headache [None]
  - Myalgia [None]
  - Muscle twitching [None]
  - Balance disorder [None]
  - Muscular weakness [None]
  - Tendon pain [None]
  - Hyperhidrosis [None]

NARRATIVE: CASE EVENT DATE: 20170323
